FAERS Safety Report 13213374 (Version 1)
Quarter: 2017Q1

REPORT INFORMATION
  Report Type: Spontaneous
  Country: US (occurrence: US)
  Receive Date: 20170210
  Receipt Date: 20170210
  Transmission Date: 20170428
  Serious: Yes (Death, Hospitalization, Other)
  Sender: FDA-Public Use
  Company Number: US-ASTELLAS-2017US004804

PATIENT
  Age: 55 Year
  Sex: Male

DRUGS (2)
  1. ANTITHYMOCYTE IMMUNOGLOBULIN (RABBIT) [Suspect]
     Active Substance: LAPINE T-LYMPHOCYTE IMMUNE GLOBULIN
     Indication: LIVER TRANSPLANT
     Dosage: UNK UNK, UNKNOWN FREQ.
     Route: 065
  2. TACROLIMUS. [Suspect]
     Active Substance: TACROLIMUS
     Indication: LIVER TRANSPLANT
     Dosage: UNK UNK, UNKNOWN FREQ.
     Route: 065

REACTIONS (9)
  - Delirium [Unknown]
  - Intra-abdominal haemorrhage [Unknown]
  - Respiratory distress [Unknown]
  - Hepatic function abnormal [Unknown]
  - Acute kidney injury [Unknown]
  - Fungaemia [Fatal]
  - Pleural effusion [Unknown]
  - Multiple organ dysfunction syndrome [Fatal]
  - Pneumonia [Unknown]
